FAERS Safety Report 8486826-6 (Version None)
Quarter: 2012Q3

REPORT INFORMATION
  Report Type: 
  Country: None (occurrence: None)
  Receive Date: 20120704
  Receipt Date: 20120622
  Transmission Date: 20120928
  Serious: Yes (Other)
  Sender: FDA-Public Use
  Company Number: AT-BRISTOL-MYERS SQUIBB COMPANY-16571804

PATIENT
  Age: 52 Year
  Sex: Male
  Weight: 80 kg

DRUGS (7)
  1. OLEOVIT [Concomitant]
     Dosage: OLEOVIT TROPFEN
  2. ORENCIA [Suspect]
     Indication: RHEUMATOID ARTHRITIS
     Dosage: SECOND INFUSION  INTERRUPTED ON 2MAR12
     Route: 042
  3. CALCIUM + VITAMIN D [Concomitant]
  4. AMIODARONE HCL [Concomitant]
  5. CHLORPROMAZINE HCL [Concomitant]
  6. HALOTHANE [Concomitant]
  7. PREDNISOLONE [Concomitant]

REACTIONS (3)
  - HEPATIC STEATOSIS [None]
  - MALAISE [None]
  - BLOOD CREATINE PHOSPHOKINASE INCREASED [None]
